FAERS Safety Report 14839009 (Version 1)
Quarter: 2018Q2

REPORT INFORMATION
  Report Type: Spontaneous
  Country: US (occurrence: US)
  Receive Date: 20180418
  Receipt Date: 20180418
  Transmission Date: 20180711
  Serious: No
  Sender: FDA-Public Use
  Company Number: None

PATIENT
  Sex: Female
  Weight: 64.86 kg

DRUGS (5)
  1. FORTEO [Suspect]
     Active Substance: TERIPARATIDE
     Indication: CROHN^S DISEASE
  2. FORTEO [Suspect]
     Active Substance: TERIPARATIDE
     Indication: MONOCLONAL GAMMOPATHY
  3. FORTEO [Suspect]
     Active Substance: TERIPARATIDE
     Indication: INTERVERTEBRAL DISC DISORDER
  4. FORTEO [Suspect]
     Active Substance: TERIPARATIDE
     Indication: OSTEOPOROSIS
     Route: 058
     Dates: start: 201707
  5. FORTEO [Suspect]
     Active Substance: TERIPARATIDE
     Indication: FELTY^S SYNDROME

REACTIONS (2)
  - Loss of consciousness [None]
  - Dizziness [None]
